FAERS Safety Report 17652498 (Version 5)
Quarter: 2020Q2

REPORT INFORMATION
  Report Type: Report from Study
  Country: US (occurrence: US)
  Receive Date: 20200409
  Receipt Date: 20200608
  Transmission Date: 20200713
  Serious: No
  Sender: FDA-Public Use
  Company Number: NVSC2020US081721

PATIENT
  Sex: Male

DRUGS (1)
  1. ENTRESTO [Suspect]
     Active Substance: SACUBITRIL\VALSARTAN
     Indication: CARDIAC FAILURE
     Dosage: 100 MG(49 MG SACUBITRIL/51 MG VALSARTAN), BID (STARTED ENTRESTO APPROX 3-4 MONTHS AGO FOR HEART FAIL
     Route: 048
     Dates: start: 2019

REACTIONS (2)
  - Dizziness [Unknown]
  - Blood pressure decreased [Not Recovered/Not Resolved]
